FAERS Safety Report 11739876 (Version 3)
Quarter: 2016Q1

REPORT INFORMATION
  Report Type: Spontaneous
  Country: BR (occurrence: BR)
  Receive Date: 20151113
  Receipt Date: 20160311
  Transmission Date: 20160525
  Serious: Yes (Other)
  Sender: FDA-Public Use
  Company Number: BR-PFIZER INC-2015384018

PATIENT
  Age: 88 Year
  Sex: Male
  Weight: 85 kg

DRUGS (7)
  1. EFFEXOR XR [Suspect]
     Active Substance: VENLAFAXINE HYDROCHLORIDE
     Dosage: 150 MG, 1X/DAY (AT NIGHT)
     Route: 048
  2. PURAN [Concomitant]
     Active Substance: LEVOTHYROXINE SODIUM
     Dosage: UNK
     Dates: start: 2015
  3. EFFEXOR XR [Suspect]
     Active Substance: VENLAFAXINE HYDROCHLORIDE
     Indication: DEPRESSION
     Dosage: 300 MG, 1X/DAY
     Route: 048
     Dates: start: 201509, end: 201511
  4. PINAZAN [Suspect]
     Active Substance: CLOZAPINE
     Dosage: HALF TABLET, DAILY
  5. EFFEXOR XR [Suspect]
     Active Substance: VENLAFAXINE HYDROCHLORIDE
     Dosage: 75 MG, 1 TABLET IN THE MORNING AND 1 TABLET AT NIGHT
     Route: 048
     Dates: start: 201511
  6. PINAZAN [Suspect]
     Active Substance: CLOZAPINE
     Dosage: AT HALF TABLET IN THE MORNING AND HALF TABLET AT NIGHT
  7. OMEPRAZOLE. [Concomitant]
     Active Substance: OMEPRAZOLE
     Dosage: UNK

REACTIONS (9)
  - Condition aggravated [Recovered/Resolved]
  - Feeling abnormal [Recovered/Resolved]
  - Prescribed overdose [Recovered/Resolved]
  - Diabetes mellitus [Recovered/Resolved]
  - Asthenia [Unknown]
  - Fall [Recovered/Resolved]
  - Somnolence [Recovered/Resolved]
  - Restlessness [Recovered/Resolved]
  - Abnormal behaviour [Recovered/Resolved]

NARRATIVE: CASE EVENT DATE: 2015
